FAERS Safety Report 9992754 (Version 2)
Quarter: 2014Q1

REPORT INFORMATION
  Report Type: Report from Study
  Country: US (occurrence: US)
  Receive Date: 20140310
  Receipt Date: 20140310
  Transmission Date: 20141002
  Serious: No
  Sender: FDA-Public Use
  Company Number: US-ABBVIE-13P-163-1124219-00

PATIENT
  Age: 43 Year
  Sex: Female

DRUGS (2)
  1. LUPRON DEPOT [Suspect]
     Indication: ENDOMETRIOSIS
     Route: 030
     Dates: start: 201302, end: 20130520
  2. NORETHINDRONE ACETATE [Suspect]
     Indication: PRODUCT USED FOR UNKNOWN INDICATION
     Dates: start: 20130520

REACTIONS (7)
  - Medication error [Unknown]
  - Hot flush [Unknown]
  - Hair disorder [Unknown]
  - Alopecia [Unknown]
  - Hypoaesthesia [Unknown]
  - Sleep disorder [Unknown]
  - Visual impairment [Unknown]
